FAERS Safety Report 18931019 (Version 1)
Quarter: 2021Q1

REPORT INFORMATION
  Report Type: Spontaneous
  Country: US (occurrence: US)
  Receive Date: 20210223
  Receipt Date: 20210223
  Transmission Date: 20210420
  Serious: Yes (Other)
  Sender: FDA-Public Use
  Company Number: US-GREER LABORATORIES, INC.-2107210

PATIENT
  Age: 11 Year
  Sex: Male
  Weight: 52.73 kg

DRUGS (20)
  1. POLLENS ? WEEDS AND GARDEN PLANTS, PLANTAIN, ENGLISH PLANTAGO LANCEOLATA [Suspect]
     Active Substance: PLANTAGO LANCEOLATA POLLEN
     Route: 058
     Dates: start: 201803
  2. POLLENS ? GRASSES, T?O?S GRASS MIX [Suspect]
     Active Substance: ANTHOXANTHUM ODORATUM POLLEN\DACTYLIS GLOMERATA POLLEN\PHLEUM PRATENSE POLLEN
     Route: 058
     Dates: start: 201803
  3. POLLENS ? WEEDS AND GARDEN PLANTS, RUSSIAN THISTLE SALSOLA KALI [Suspect]
     Active Substance: SALSOLA KALI POLLEN
     Route: 058
     Dates: start: 201803
  4. POLLENS ? WEEDS AND GARDEN PLANTS, LAMB QUARTERS CHENOPODIUM ALBUM [Suspect]
     Active Substance: CHENOPODIUM ALBUM POLLEN
     Route: 058
     Dates: start: 201803
  5. DOG EPITHELIA [Suspect]
     Active Substance: CANIS LUPUS FAMILIARIS SKIN
     Route: 058
     Dates: start: 201803
  6. STANDARDIZED BERMUDA GRASS [Suspect]
     Active Substance: CYNODON DACTYLON POLLEN
     Route: 058
     Dates: start: 201803
  7. AUVI?Q [Concomitant]
     Active Substance: EPINEPHRINE
     Route: 030
  8. POLLENS ? WEEDS AND GARDEN PLANTS, PIGWEED, ROUGH REDROOT AMARANTHUS RETROFLEXUS [Suspect]
     Active Substance: AMARANTHUS RETROFLEXUS POLLEN
     Route: 058
     Dates: start: 201803
  9. STANDARDIZED CAT HAIR [Suspect]
     Active Substance: FELIS CATUS HAIR
     Route: 058
     Dates: start: 201803
  10. POLLENS ? TREES, CEDAR, RED JUNIPERUS VIRGINIANA [Suspect]
     Active Substance: JUNIPERUS VIRGINIANA POLLEN
     Route: 058
     Dates: start: 201803
  11. SINGULAIR [Concomitant]
     Active Substance: MONTELUKAST SODIUM
     Route: 048
  12. POLLENS ? TREES, SYCAMORE, AMERICAN EASTERN PLATANUS OCCIDENTALLIS [Suspect]
     Active Substance: PLATANUS OCCIDENTALIS POLLEN
     Route: 058
     Dates: start: 201803
  13. MOLD MIX 3 [Suspect]
     Active Substance: ALTERNARIA ALTERNATA\ASPERGILLUS NIGER VAR. NIGER\CLADOSPORIUM SPHAEROSPERMUM\PENICILLIUM CHRYSOGENUM VAR. CHRYSOGENUM
     Route: 058
     Dates: start: 201803
  14. PROAIR HFA [Concomitant]
     Active Substance: ALBUTEROL SULFATE
     Route: 055
  15. EASTERN 8 TREE POLLEN MIX [Suspect]
     Active Substance: ACER SACCHARUM POLLEN\BETULA NIGRA POLLEN\CARYA OVATA POLLEN\FAGUS GRANDIFOLIA POLLEN\FRAXINUS AMERICANA POLLEN\POPULUS DELTOIDES POLLEN\QUERCUS RUBRA POLLEN\ULMUS AMERICANA POLLEN
     Indication: ASTHMA
     Route: 058
     Dates: start: 201803
  16. POLLENS ? WEEDS AND GARDEN PLANTS, COCKLEBUR XANTHIUM STRUMARIUM [Suspect]
     Active Substance: XANTHIUM STRUMARIUM POLLEN
     Route: 058
     Dates: start: 201803
  17. POLLENS ? WEEDS, DOCK/SORREL MIX [Suspect]
     Active Substance: RUMEX ACETOSELLA POLLEN\RUMEX CRISPUS POLLEN
     Route: 058
     Dates: start: 201803
  18. STANDARDIZED MITE MIX DERMATOPHAGOIDES FARINAE AND DERMATOPHAGOIDES PTERONYSSINUS [Suspect]
     Active Substance: DERMATOPHAGOIDES FARINAE\DERMATOPHAGOIDES PTERONYSSINUS
     Route: 058
     Dates: start: 201803
  19. POLLENS ? WEEDS AND GARDEN PLANTS, SHORT RAGWEED, AMBROSIA ARTEMISIIFOLIA [Suspect]
     Active Substance: AMBROSIA ARTEMISIIFOLIA POLLEN
     Route: 058
     Dates: start: 201803
  20. POLLENS ? WEEDS AND GARDEN PLANTS, SAGEBRUSH, MUGWORT ARTEMISIA VULGARIS [Suspect]
     Active Substance: ARTEMISIA VULGARIS POLLEN
     Route: 058
     Dates: start: 201803

REACTIONS (5)
  - Sinus congestion [Recovered/Resolved]
  - Sneezing [Recovered/Resolved]
  - Lacrimation increased [Recovered/Resolved]
  - Treatment noncompliance [Unknown]
  - Rhinorrhoea [Recovered/Resolved]

NARRATIVE: CASE EVENT DATE: 20201202
